FAERS Safety Report 16117519 (Version 3)
Quarter: 2019Q2

REPORT INFORMATION
  Report Type: Report from Study
  Country: None (occurrence: BR)
  Receive Date: 20190326
  Receipt Date: 20190626
  Transmission Date: 20190711
  Serious: Yes (Hospitalization, Other)
  Sender: FDA-Public Use
  Company Number: BR-ABBVIE-19K-020-2688305-00

PATIENT
  Age: 14 Year
  Sex: Female
  Weight: 44 kg

DRUGS (9)
  1. HUMIRA [Suspect]
     Active Substance: ADALIMUMAB
     Route: 058
     Dates: start: 20190614
  2. PEROLA [Concomitant]
     Indication: CONTRACEPTION
  3. PARACETAMOL AND CODEINE [Concomitant]
     Active Substance: ACETAMINOPHEN\CODEINE PHOSPHATE
     Indication: ARTHRALGIA
  4. PEROLA [Concomitant]
     Indication: ENDOMETRIOSIS
  5. PANTOPRAZOLE [Concomitant]
     Active Substance: PANTOPRAZOLE
     Indication: GASTROOESOPHAGEAL REFLUX DISEASE
  6. OMEPRAZOLE. [Concomitant]
     Active Substance: OMEPRAZOLE
     Indication: GASTRIC DISORDER
     Dosage: 1 UNIT IN THE MORNING DURING FASTING
  7. PANTOPRAZOLE [Concomitant]
     Active Substance: PANTOPRAZOLE
     Indication: HIATUS HERNIA
  8. AMITRIPTYLINE [Concomitant]
     Active Substance: AMITRIPTYLINE
     Indication: PRODUCT USED FOR UNKNOWN INDICATION
     Dates: start: 2018
  9. HUMIRA [Suspect]
     Active Substance: ADALIMUMAB
     Indication: JUVENILE IDIOPATHIC ARTHRITIS
     Route: 058
     Dates: start: 20181206

REACTIONS (20)
  - Diarrhoea [Recovered/Resolved]
  - Cellulitis [Recovered/Resolved]
  - Purulence [Unknown]
  - Urinary tract infection [Recovering/Resolving]
  - Mass [Not Recovered/Not Resolved]
  - Fatigue [Not Recovered/Not Resolved]
  - Social avoidant behaviour [Unknown]
  - Intentional product misuse [Unknown]
  - Headache [Unknown]
  - Arthralgia [Unknown]
  - Nausea [Not Recovered/Not Resolved]
  - Crying [Unknown]
  - Pain in extremity [Unknown]
  - Vomiting [Recovered/Resolved]
  - Culture positive [Not Recovered/Not Resolved]
  - Device occlusion [Recovered/Resolved]
  - Dry skin [Not Recovered/Not Resolved]
  - Pain [Not Recovered/Not Resolved]
  - Pruritus generalised [Not Recovered/Not Resolved]
  - H1N1 influenza [Not Recovered/Not Resolved]

NARRATIVE: CASE EVENT DATE: 2018
